FAERS Safety Report 4390569-8 (Version None)
Quarter: 2004Q2

REPORT INFORMATION
  Report Type: 
  Country: None (occurrence: None)
  Receive Date: 20040630
  Receipt Date: 20040615
  Transmission Date: 20050107
  Serious: Yes (Death)
  Sender: FDA-Public Use
  Company Number: S04-USA-03515-02

PATIENT
  Age: 0 Day
  Sex: Female
  Weight: 3.3 kg

DRUGS (16)
  1. LEXAPRO [Suspect]
     Indication: DEPRESSION
     Dosage: 10 MG QD TRANSPLACENTAL
     Route: 064
     Dates: start: 20030101, end: 20040427
  2. ZOFRAN [Concomitant]
  3. PHENERGAN [Concomitant]
  4. VALTREX [Concomitant]
  5. PRENATAL VITAMINS [Concomitant]
  6. MACROBID [Concomitant]
  7. COMPAZINE (PROCLORPERAZINE EDISYLATE) [Concomitant]
  8. STOOL SOFTENERS [Concomitant]
  9. AMOXICILLIN [Concomitant]
  10. MONISTAT [Concomitant]
  11. TUMS (CALCIUM CARBONATE) [Concomitant]
  12. ANTACID TAB [Concomitant]
  13. CALCIUM [Concomitant]
  14. VITAMIN D [Concomitant]
  15. VITAMIN K TAB [Concomitant]
  16. ERYTHROMYCIN [Concomitant]

REACTIONS (19)
  - ATELECTASIS [None]
  - BLOOD PH DECREASED [None]
  - BLOOD PRESSURE DECREASED [None]
  - CYANOSIS [None]
  - DEATH NEONATAL [None]
  - DRUG EXPOSURE DURING PREGNANCY [None]
  - DYSPNOEA [None]
  - LUNG DISORDER [None]
  - NEONATAL DISORDER [None]
  - NEONATAL RESPIRATORY ARREST [None]
  - NEONATAL TACHYCARDIA [None]
  - PALLOR [None]
  - PCO2 INCREASED [None]
  - PO2 INCREASED [None]
  - PREMATURE SEPARATION OF PLACENTA [None]
  - PULSE ABSENT [None]
  - RED CELL DISTRIBUTION WIDTH DECREASED [None]
  - RESPIRATION ABNORMAL [None]
  - SUDDEN DEATH [None]
